FAERS Safety Report 10189866 (Version 1)
Quarter: 2014Q2

REPORT INFORMATION
  Report Type: Spontaneous
  Country: US (occurrence: US)
  Receive Date: 20140522
  Receipt Date: 20140522
  Transmission Date: 20141212
  Serious: Yes (Other)
  Sender: FDA-Public Use
  Company Number: US-SA-2014SA000425

PATIENT
  Age: 63 Year
  Sex: Female

DRUGS (4)
  1. LANTUS [Suspect]
     Indication: DIABETES MELLITUS
     Route: 065
  2. HUMALOG [Suspect]
     Indication: DIABETES MELLITUS
     Dosage: DOSE 15 UNITS EACH MORNING, 15 UNITS AT LUNCH AND 16 UNITS AT DINNER
     Route: 065
  3. WATER PILLS [Concomitant]
     Indication: DYSPEPSIA
  4. ALL OTHER THERAPEUTIC PRODUCTS [Concomitant]
     Indication: DYSPEPSIA

REACTIONS (7)
  - Hypoglycaemia [Unknown]
  - Memory impairment [Not Recovered/Not Resolved]
  - Photopsia [Unknown]
  - Weight decreased [Not Recovered/Not Resolved]
  - Obesity [Unknown]
  - Blood glucose increased [Not Recovered/Not Resolved]
  - Drug ineffective [Unknown]
